FAERS Safety Report 22650396 (Version 1)
Quarter: 2023Q2

REPORT INFORMATION
  Report Type: Spontaneous
  Country: FR (occurrence: FR)
  Receive Date: 20230628
  Receipt Date: 20230628
  Transmission Date: 20230721
  Serious: Yes (Hospitalization)
  Sender: FDA-Public Use
  Company Number: FR-OTSUKA-2023_016988

PATIENT
  Age: 21 Year
  Sex: Male

DRUGS (1)
  1. ABILIFY MAINTENA [Suspect]
     Active Substance: ARIPIPRAZOLE
     Indication: Schizophrenia
     Dosage: 400 MG (DOUBLE INJECTION)
     Route: 065

REACTIONS (3)
  - Malaise [Unknown]
  - Tachycardia [Unknown]
  - Troponin increased [Unknown]
